FAERS Safety Report 21864783 (Version 2)
Quarter: 2023Q1

REPORT INFORMATION
  Report Type: Spontaneous
  Country: US (occurrence: US)
  Receive Date: 20230116
  Receipt Date: 20230209
  Transmission Date: 20230418
  Serious: No
  Sender: FDA-Public Use
  Company Number: US-JNJFOC-20230120608

PATIENT
  Age: 51 Year
  Sex: Male

DRUGS (7)
  1. OPSUMIT [Suspect]
     Active Substance: MACITENTAN
     Indication: Product used for unknown indication
     Route: 048
  2. TREPROSTINIL SODIUM [Suspect]
     Active Substance: TREPROSTINIL SODIUM
     Indication: Pulmonary arterial hypertension
     Route: 058
     Dates: start: 20211022
  3. TREPROSTINIL [Suspect]
     Active Substance: TREPROSTINIL
     Indication: Pulmonary arterial hypertension
     Route: 048
     Dates: start: 20221209
  4. TREPROSTINIL [Suspect]
     Active Substance: TREPROSTINIL
     Route: 048
  5. TREPROSTINIL [Suspect]
     Active Substance: TREPROSTINIL
     Route: 048
  6. TREPROSTINIL [Suspect]
     Active Substance: TREPROSTINIL
     Route: 048
  7. REVATIO [Suspect]
     Active Substance: SILDENAFIL CITRATE
     Indication: Product used for unknown indication
     Route: 065

REACTIONS (5)
  - Therapy non-responder [Unknown]
  - Headache [Unknown]
  - Nausea [Not Recovered/Not Resolved]
  - Flushing [Unknown]
  - Infusion site pain [Unknown]
